FAERS Safety Report 15682005 (Version 6)
Quarter: 2019Q3

REPORT INFORMATION
  Report Type: Spontaneous
  Country: US (occurrence: US)
  Receive Date: 20181203
  Receipt Date: 20190724
  Transmission Date: 20191004
  Serious: No
  Sender: FDA-Public Use
  Company Number: US-PFIZER INC-2018498682

PATIENT
  Age: 59 Year
  Sex: Female
  Weight: 93 kg

DRUGS (13)
  1. CARISOPRODOL. [Concomitant]
     Active Substance: CARISOPRODOL
     Dosage: UNK
  2. OXYMORPHONE ER [Concomitant]
     Active Substance: OXYMORPHONE
     Dosage: 15 MG, 2X/DAY
  3. PLATINOL [Concomitant]
     Active Substance: CISPLATIN
     Indication: CHEMOTHERAPY
     Dosage: 01 CYCLE
  4. DOCETAXEL. [Suspect]
     Active Substance: DOCETAXEL
     Indication: ORAL CAVITY CANCER METASTATIC
     Dosage: 01 CYCLE (160 MG AND 80 MG)
     Dates: start: 20121026, end: 20121026
  5. DOCETAXEL. [Suspect]
     Active Substance: DOCETAXEL
     Dosage: 01 CYCLE (160 MG AND 80 MG)
     Dates: start: 20121026, end: 20121026
  6. ISENTRESS [Concomitant]
     Active Substance: RALTEGRAVIR POTASSIUM
     Dosage: UNK
     Dates: start: 20070101
  7. DURAGESIC [Concomitant]
     Active Substance: FENTANYL
     Dosage: UNK
  8. TRUVADA [Concomitant]
     Active Substance: EMTRICITABINE\TENOFOVIR DISOPROXIL FUMARATE
     Dosage: UNK
     Dates: start: 20050101
  9. INTELENCE [Concomitant]
     Active Substance: ETRAVIRINE
     Dosage: UNK
     Dates: start: 20080101
  10. PREVACID [Concomitant]
     Active Substance: LANSOPRAZOLE
     Dosage: UNK
  11. PLATINOL [Concomitant]
     Active Substance: CISPLATIN
     Dosage: 02 CYCLES
  12. ESTRADIOL. [Concomitant]
     Active Substance: ESTRADIOL
     Dosage: UNK
     Dates: start: 20090101
  13. BIKTARVY [Concomitant]
     Active Substance: BICTEGRAVIR SODIUM\EMTRICITABINE\TENOFOVIR ALAFENAMIDE FUMARATE
     Dosage: UNK
     Dates: start: 20090101

REACTIONS (5)
  - Alopecia [Not Recovered/Not Resolved]
  - Hair texture abnormal [Not Recovered/Not Resolved]
  - Hair colour changes [Not Recovered/Not Resolved]
  - Madarosis [Not Recovered/Not Resolved]
  - Hair disorder [Not Recovered/Not Resolved]

NARRATIVE: CASE EVENT DATE: 20121207
